FAERS Safety Report 21601290 (Version 3)
Quarter: 2023Q1

REPORT INFORMATION
  Report Type: Spontaneous
  Country: CA (occurrence: CA)
  Receive Date: 20221116
  Receipt Date: 20230214
  Transmission Date: 20230418
  Serious: Yes (Hospitalization, Other)
  Sender: FDA-Public Use
  Company Number: CA-002147023-NVSC2022CA253233

PATIENT
  Age: 74 Year
  Sex: Male

DRUGS (22)
  1. CYCLOSPORINE [Suspect]
     Active Substance: CYCLOSPORINE
     Indication: Pure white cell aplasia
     Dosage: 100 MG, BID
     Route: 065
  2. CYCLOSPORINE [Suspect]
     Active Substance: CYCLOSPORINE
     Indication: Immunosuppression
     Dosage: 75 MG, BID
     Route: 065
  3. CYCLOSPORINE [Suspect]
     Active Substance: CYCLOSPORINE
     Dosage: 175 MG
     Route: 065
  4. CYCLOSPORINE [Suspect]
     Active Substance: CYCLOSPORINE
     Dosage: 50 MG, BID
     Route: 065
  5. CYCLOSPORINE [Suspect]
     Active Substance: CYCLOSPORINE
     Dosage: 75 MG, QD
     Route: 065
  6. CYCLOSPORINE [Suspect]
     Active Substance: CYCLOSPORINE
     Dosage: 100 MG, QD
     Route: 065
  7. DANAZOL [Suspect]
     Active Substance: DANAZOL
     Indication: Cytopenia
     Dosage: 200 MG, BID
     Route: 065
  8. DAPSONE [Suspect]
     Active Substance: DAPSONE
     Indication: Cytopenia
     Dosage: 100 MG, QD
     Route: 065
  9. PREDNISONE [Suspect]
     Active Substance: PREDNISONE
     Indication: Pure white cell aplasia
     Dosage: 10 MG/KG, QD
     Route: 065
  10. PREDNISONE [Suspect]
     Active Substance: PREDNISONE
     Indication: Immunosuppression
     Dosage: 10 MG, QW
     Route: 065
  11. PREDNISONE [Suspect]
     Active Substance: PREDNISONE
     Dosage: 1.0 MG/KG, QD
     Route: 065
  12. HUMAN IMMUNOGLOBULIN G [Suspect]
     Active Substance: HUMAN IMMUNOGLOBULIN G
     Indication: Pure white cell aplasia
     Dosage: UNK
     Route: 042
  13. HUMAN IMMUNOGLOBULIN G [Suspect]
     Active Substance: HUMAN IMMUNOGLOBULIN G
     Indication: Pure white cell aplasia
     Dosage: UNK
     Route: 042
  14. ATORVASTATIN [Concomitant]
     Active Substance: ATORVASTATIN
     Indication: Dyslipidaemia
     Dosage: UNK
     Route: 065
  15. ELTROMBOPAG [Concomitant]
     Active Substance: ELTROMBOPAG
     Indication: Immune thrombocytopenia
     Dosage: UNK
     Route: 065
  16. ELTROMBOPAG [Concomitant]
     Active Substance: ELTROMBOPAG
     Dosage: 75 MG, QD
     Route: 065
  17. GRANULOCYTE COLONY-STIMULATING FACTOR NOS [Concomitant]
     Active Substance: GRANULOCYTE COLONY-STIMULATING FACTOR NOS
     Indication: Pure white cell aplasia
     Dosage: 300 UG
     Route: 058
  18. GRANULOCYTE COLONY-STIMULATING FACTOR NOS [Concomitant]
     Active Substance: GRANULOCYTE COLONY-STIMULATING FACTOR NOS
     Indication: Immunosuppression
  19. METFORMIN [Concomitant]
     Active Substance: METFORMIN HYDROCHLORIDE
     Indication: Type 2 diabetes mellitus
     Dosage: UNK
     Route: 065
  20. ATORVASTATIN CALCIUM [Concomitant]
     Active Substance: ATORVASTATIN CALCIUM
     Indication: Dyslipidaemia
     Dosage: UNK
     Route: 065
  21. PREDNISONE [Concomitant]
     Active Substance: PREDNISONE
     Indication: Pure white cell aplasia
     Dosage: 1 DOSAGE FORM, QD (1.0 MG/KG 1 EVERY 24 HOURS)
     Route: 065
  22. PREDNISONE [Concomitant]
     Active Substance: PREDNISONE
     Indication: Immunosuppression
     Dosage: 10 MG, QW
     Route: 065

REACTIONS (5)
  - Condition aggravated [Not Recovered/Not Resolved]
  - Acute kidney injury [Not Recovered/Not Resolved]
  - Renal impairment [Not Recovered/Not Resolved]
  - Renal failure [Not Recovered/Not Resolved]
  - Therapy non-responder [Not Recovered/Not Resolved]
